FAERS Safety Report 24248596 (Version 2)
Quarter: 2024Q3

REPORT INFORMATION
  Report Type: Spontaneous
  Country: US (occurrence: US)
  Receive Date: 20240826
  Receipt Date: 20240827
  Transmission Date: 20241016
  Serious: Yes (Death)
  Sender: PFIZER
  Company Number: US-PFIZER INC-202400241494

PATIENT

DRUGS (1)
  1. FENTANYL CITRATE [Suspect]
     Active Substance: FENTANYL CITRATE
     Dosage: 2 ML

REACTIONS (2)
  - Overdose [Fatal]
  - Death [Fatal]
